FAERS Safety Report 8384737-8 (Version None)
Quarter: 2012Q2

REPORT INFORMATION
  Report Type: 
  Country: None (occurrence: None)
  Receive Date: 20120524
  Receipt Date: 20120515
  Transmission Date: 20120825
  Serious: Yes (Hospitalization, Other)
  Sender: FDA-Public Use
  Company Number: US-ABBOTT-12P-163-0935604-00

PATIENT
  Sex: Male
  Weight: 133.93 kg

DRUGS (3)
  1. LUPRON DEPOT [Suspect]
     Indication: PROSTATE CANCER
     Route: 030
     Dates: start: 20120118, end: 20120118
  2. LUPRON DEPOT [Suspect]
     Indication: PROSTATE CANCER
     Dates: start: 20110101, end: 20110101
  3. LUPRON DEPOT [Suspect]
     Indication: PROSTATE CANCER
     Dates: start: 20110214, end: 20110301

REACTIONS (4)
  - ABASIA [None]
  - WALKING AID USER [None]
  - HYPOAESTHESIA [None]
  - GUILLAIN-BARRE SYNDROME [None]
